FAERS Safety Report 19456520 (Version 3)
Quarter: 2022Q1

REPORT INFORMATION
  Report Type: Other
  Country: DE (occurrence: DE)
  Receive Date: 20210624
  Receipt Date: 20220129
  Transmission Date: 20220423
  Serious: Yes (Other)
  Sender: FDA-Public Use
  Company Number: DE-TEVA-2021-DE-1920073

PATIENT
  Age: 44 Year
  Sex: Female

DRUGS (11)
  1. VEMURAFENIB [Suspect]
     Active Substance: VEMURAFENIB
     Indication: Metastases to lymph nodes
     Route: 065
  2. COBIMETINIB [Suspect]
     Active Substance: COBIMETINIB
     Indication: Metastases to lymph nodes
     Route: 065
  3. DABRAFENIB [Suspect]
     Active Substance: DABRAFENIB
     Indication: Metastases to lymph nodes
     Route: 065
  4. CARBOPLATIN [Suspect]
     Active Substance: CARBOPLATIN
     Indication: Metastases to lymph nodes
     Route: 065
  5. DACARBAZINE [Suspect]
     Active Substance: DACARBAZINE
     Indication: Metastases to lymph nodes
     Route: 065
  6. DINITROCHLOROBENZENE [Suspect]
     Active Substance: DINITROCHLOROBENZENE
     Indication: Metastases to lymph nodes
     Route: 061
  7. TRAMETINIB [Suspect]
     Active Substance: TRAMETINIB
     Indication: Metastases to lymph nodes
     Route: 065
  8. PEMBROLIZUMAB [Suspect]
     Active Substance: PEMBROLIZUMAB
     Indication: Metastases to lymph nodes
     Route: 065
  9. IPILIMUMAB [Suspect]
     Active Substance: IPILIMUMAB
     Indication: Metastases to lymph nodes
     Dosage: INITIALLY RECEIVED 4 CYCLES; THE TREATMENT WAS COMPLETED A
     Route: 065
  10. PACLITAXEL [Suspect]
     Active Substance: PACLITAXEL
     Indication: Metastases to lymph nodes
     Route: 065
  11. INTERFERON ALFA NOS [Suspect]
     Active Substance: INTERFERON ALFA-2A OR INTERFERON ALFA-2B
     Indication: Metastases to lymph nodes
     Route: 065

REACTIONS (2)
  - Erysipelas [Unknown]
  - Drug ineffective [Unknown]
